FAERS Safety Report 10444735 (Version 1)
Quarter: 2014Q3

REPORT INFORMATION
  Report Type: Spontaneous
  Country: US (occurrence: US)
  Receive Date: 20140910
  Receipt Date: 20140910
  Transmission Date: 20150326
  Serious: Yes (Other)
  Sender: FDA-Public Use
  Company Number: US-BAYER-2014-132048

PATIENT
  Age: 34 Year
  Sex: Female

DRUGS (1)
  1. MIRENA [Suspect]
     Active Substance: LEVONORGESTREL
     Indication: CONTRACEPTION
     Dosage: UNK
     Route: 015
     Dates: start: 2012, end: 20140718

REACTIONS (7)
  - Device dislocation [None]
  - Discomfort [None]
  - Headache [None]
  - Device difficult to use [None]
  - Procedural pain [None]
  - Abdominal pain [None]
  - Procedural pain [None]

NARRATIVE: CASE EVENT DATE: 20140709
